FAERS Safety Report 6980037-9 (Version None)
Quarter: 2010Q3

REPORT INFORMATION
  Report Type: 
  Country: None (occurrence: None)
  Receive Date: 20100914
  Receipt Date: 20100902
  Transmission Date: 20110219
  Serious: Yes (Hospitalization, Other)
  Sender: FDA-Public Use
  Company Number: JP-PFIZER INC-2010101313

PATIENT
  Age: 84 Year
  Sex: Female

DRUGS (4)
  1. LYRICA [Suspect]
     Indication: POST HERPETIC NEURALGIA
     Dosage: 75 MG, 2X/DAY
     Route: 048
     Dates: start: 20100728, end: 20100729
  2. ALLELOCK [Suspect]
     Dosage: UNK
     Dates: start: 20100805, end: 20100814
  3. LEVOFLOXACIN [Suspect]
     Dosage: UNK
     Dates: start: 20100811, end: 20100814
  4. ACICLOVIR [Concomitant]
     Indication: HERPES ZOSTER
     Dosage: 250 MG/DAY
     Dates: start: 20100628, end: 20100702

REACTIONS (2)
  - DRUG ERUPTION [None]
  - LUNG DISORDER [None]
